FAERS Safety Report 17018290 (Version 2)
Quarter: 2019Q4

REPORT INFORMATION
  Report Type: Spontaneous
  Country: US (occurrence: US)
  Receive Date: 20191111
  Receipt Date: 20191227
  Transmission Date: 20200122
  Serious: No
  Sender: FDA-Public Use
  Company Number: US-009507513-1911USA001469

PATIENT
  Age: 52 Year
  Sex: Male
  Weight: 200 kg

DRUGS (2)
  1. KEYTRUDA [Suspect]
     Active Substance: PEMBROLIZUMAB
     Indication: HEPATIC CANCER
     Dosage: UNK ONCE EVERY 3 WEEKS
     Route: 042
     Dates: start: 20191030
  2. INSULIN [Concomitant]
     Active Substance: INSULIN NOS

REACTIONS (3)
  - Vomiting [Not Recovered/Not Resolved]
  - Fatigue [Not Recovered/Not Resolved]
  - Nausea [Not Recovered/Not Resolved]

NARRATIVE: CASE EVENT DATE: 20191103
